FAERS Safety Report 8479273-4 (Version None)
Quarter: 2012Q2

REPORT INFORMATION
  Report Type: 
  Country: None (occurrence: None)
  Receive Date: 20120629
  Receipt Date: 20120625
  Transmission Date: 20120825
  Serious: Yes (Other)
  Sender: FDA-Public Use
  Company Number: US-GLAXOSMITHKLINE-A0982338A

PATIENT
  Age: 88 Year
  Sex: Female

DRUGS (6)
  1. AVASTIN [Concomitant]
  2. VENTOLIN HFA [Concomitant]
  3. ADVAIR DISKUS 100/50 [Suspect]
     Indication: ASTHMA
     Dosage: 1PUFF TWICE PER DAY
     Route: 055
     Dates: start: 20010401, end: 20120501
  4. SEREVENT [Suspect]
     Indication: ASTHMA
     Dosage: 1PUFF TWICE PER DAY
     Route: 055
  5. ASPIRIN [Concomitant]
  6. NEXIUM [Concomitant]

REACTIONS (5)
  - DYSPNOEA [None]
  - SCAR [None]
  - PNEUMONIA [None]
  - CONTUSION [None]
  - OROPHARYNGEAL PAIN [None]
